FAERS Safety Report 4673209-X (Version None)
Quarter: 2005Q2

REPORT INFORMATION
  Report Type: 
  Country: None (occurrence: None)
  Receive Date: 20050523
  Receipt Date: 20050523
  Transmission Date: 20051028
  Serious: Yes (Other)
  Sender: FDA-Public Use
  Company Number: None

PATIENT
  Age: 97 Year
  Sex: Male
  Weight: 65.5 kg

DRUGS (19)
  1. RISPERIDONE [Suspect]
  2. PAROXETINE [Concomitant]
  3. ZOLPIDEM TARTRATE [Concomitant]
  4. ACETAMINOPHEN [Concomitant]
  5. LUBRICATING (PF) OPH OINT [Concomitant]
  6. SODIUM CHLORIDE [Concomitant]
  7. CAPSAICIN [Concomitant]
  8. VITAMIN E [Concomitant]
  9. ASCORBIC ACID [Concomitant]
  10. NITROGLYCERIN [Concomitant]
  11. ALOH/MGOH/SIMTH XTRA STRENGTH LIQ SUSP [Concomitant]
  12. MILK OF MAGNESIA TAB [Concomitant]
  13. HYPROMELLOSE [Concomitant]
  14. EUCERIN [Concomitant]
  15. SENNA CONC [Concomitant]
  16. OMEPRAZOLE [Concomitant]
  17. FUROSEMIDE [Concomitant]
  18. ATENOLOL [Concomitant]
  19. ASPIRIN [Concomitant]

REACTIONS (1)
  - DIZZINESS [None]
